FAERS Safety Report 12240648 (Version 7)
Quarter: 2016Q3

REPORT INFORMATION
  Report Type: Report from Study
  Country: GB (occurrence: GB)
  Receive Date: 20160406
  Receipt Date: 20160829
  Transmission Date: 20161109
  Serious: Yes (Hospitalization)
  Sender: FDA-Public Use
  Company Number: GB-ROCHE-1643780

PATIENT
  Age: 78 Year
  Sex: Female

DRUGS (18)
  1. LETROZOLE. [Suspect]
     Active Substance: LETROZOLE
     Indication: BREAST CANCER METASTATIC
     Route: 048
     Dates: start: 20150819, end: 20160113
  2. GLYCEROL [Concomitant]
     Active Substance: GLYCERIN
     Indication: CONSTIPATION
     Dosage: 2 OTHER
     Route: 048
     Dates: start: 20150819
  3. FUROSEMIDE. [Concomitant]
     Active Substance: FUROSEMIDE
     Route: 048
  4. DENOSUMAB [Concomitant]
     Active Substance: DENOSUMAB
     Route: 058
     Dates: start: 20150602
  5. DIGOXIN. [Concomitant]
     Active Substance: DIGOXIN
     Route: 048
     Dates: start: 20150519
  6. CLOPIDOGREL [Concomitant]
     Active Substance: CLOPIDOGREL BISULFATE
     Indication: CEREBROVASCULAR ACCIDENT
     Route: 048
     Dates: start: 20160412
  7. TRASTUZUMAB [Suspect]
     Active Substance: TRASTUZUMAB
     Indication: BREAST CANCER METASTATIC
     Route: 058
     Dates: start: 20150819, end: 20160323
  8. MACROGOL [Concomitant]
     Active Substance: POLYETHYLENE GLYCOLS
     Indication: CONSTIPATION
     Dosage: 2 OTHER
     Route: 048
     Dates: start: 20150819
  9. ATORVASTATIN [Concomitant]
     Active Substance: ATORVASTATIN
     Route: 048
     Dates: start: 20160412
  10. ASPRIN [Concomitant]
     Active Substance: ASPIRIN
     Route: 048
     Dates: start: 20160403, end: 20160412
  11. DENOSUMAB [Concomitant]
     Active Substance: DENOSUMAB
     Indication: CONSTIPATION
     Route: 042
     Dates: start: 20150530, end: 20150728
  12. BENDROFLUMETHIAZIDE [Concomitant]
     Active Substance: BENDROFLUMETHIAZIDE
     Route: 048
     Dates: start: 20160412
  13. LANSOPRAZOLE. [Concomitant]
     Active Substance: LANSOPRAZOLE
     Route: 048
     Dates: start: 20160412
  14. BISOPROLOL [Concomitant]
     Active Substance: BISOPROLOL
     Route: 048
     Dates: start: 20160412
  15. FULVESTRANT [Suspect]
     Active Substance: FULVESTRANT
     Indication: BREAST CANCER METASTATIC
     Route: 058
     Dates: start: 20150331, end: 20150728
  16. ANASTROZOLE. [Suspect]
     Active Substance: ANASTROZOLE
     Indication: BREAST CANCER METASTATIC
     Route: 048
     Dates: start: 20160113
  17. DIGOXIN. [Concomitant]
     Active Substance: DIGOXIN
     Route: 048
     Dates: start: 20150716
  18. TRIMETHOPRIM. [Concomitant]
     Active Substance: TRIMETHOPRIM
     Route: 048
     Dates: start: 20160411

REACTIONS (16)
  - Lower respiratory tract infection [Recovered/Resolved]
  - Urinary tract infection [Not Recovered/Not Resolved]
  - Vomiting [Not Recovered/Not Resolved]
  - Headache [Not Recovered/Not Resolved]
  - Tooth extraction [Recovered/Resolved]
  - Pain in extremity [Not Recovered/Not Resolved]
  - Mouth swelling [Unknown]
  - Swelling face [Not Recovered/Not Resolved]
  - Abdominal pain lower [Recovered/Resolved]
  - Cellulitis [Recovered/Resolved]
  - Nausea [Not Recovered/Not Resolved]
  - Superinfection [Recovering/Resolving]
  - Abdominal pain [Not Recovered/Not Resolved]
  - Headache [Recovered/Resolved]
  - Asthenia [Not Recovered/Not Resolved]
  - Cough [Recovered/Resolved]

NARRATIVE: CASE EVENT DATE: 20150705
